FAERS Safety Report 7304667-X (Version None)
Quarter: 2011Q1

REPORT INFORMATION
  Report Type: 
  Country: None (occurrence: None)
  Receive Date: 20110222
  Receipt Date: 20110209
  Transmission Date: 20110831
  Serious: Yes (Other)
  Sender: FDA-Public Use
  Company Number: AR-AMGEN-ARGSP2011001654

PATIENT
  Age: 63 Year
  Sex: Female
  Weight: 61 kg

DRUGS (4)
  1. AMITRIPTYLINE [Concomitant]
     Dosage: 25 MG, 1X/DAY
     Route: 048
     Dates: start: 20101101
  2. METHOTREXATE [Concomitant]
     Dosage: 10 MG, 1X/DAY
     Route: 048
     Dates: start: 19950101
  3. CLONAZEPAM [Concomitant]
     Dosage: 2 MG, 1X/DAY
     Route: 048
     Dates: start: 20070101
  4. ENBREL [Suspect]
     Indication: RHEUMATOID ARTHRITIS
     Dosage: 50 MG, WEEKLY
     Route: 058
     Dates: start: 20050601

REACTIONS (3)
  - IMMUNODEFICIENCY [None]
  - ALLERGIC RESPIRATORY SYMPTOM [None]
  - EMOTIONAL DISORDER [None]
